FAERS Safety Report 6612511-9 (Version None)
Quarter: 2010Q1

REPORT INFORMATION
  Report Type: 
  Country: None (occurrence: None)
  Receive Date: 20100223
  Receipt Date: 20100210
  Transmission Date: 20100710
  Serious: Yes (Life-Threatening, Hospitalization, Disabling, Other)
  Sender: FDA-Public Use
  Company Number: AUR-APL-2010-00088

PATIENT
  Age: 44 Year
  Sex: Female

DRUGS (2)
  1. MIRTAZAPINE [Suspect]
     Indication: PSYCHOMOTOR RETARDATION
     Dosage: 45MG-4 TIMES A DAY-ORAL
     Route: 048
     Dates: start: 20080123, end: 20080212
  2. RISPERIDONE [Suspect]
     Indication: BIPOLAR DISORDER
     Dosage: 62.5MG-WEEKLY-IM
     Route: 030
     Dates: start: 20071102, end: 20080124

REACTIONS (3)
  - BEDRIDDEN [None]
  - NEUROLEPTIC MALIGNANT SYNDROME [None]
  - SEROTONIN SYNDROME [None]
